FAERS Safety Report 4828573-5 (Version None)
Quarter: 2005Q4

REPORT INFORMATION
  Report Type: 
  Country: None (occurrence: None)
  Receive Date: 20051115
  Receipt Date: 20051107
  Transmission Date: 20060501
  Serious: Yes (Other)
  Sender: FDA-Public Use
  Company Number: PHBS2005JP16499

PATIENT
  Age: 55 Year
  Sex: Female

DRUGS (2)
  1. PREDONINE [Suspect]
     Indication: DERMATOMYOSITIS
     Route: 048
  2. NEORAL [Suspect]
     Indication: DERMATOMYOSITIS
     Route: 048

REACTIONS (2)
  - DEEP VEIN THROMBOSIS [None]
  - PULMONARY EMBOLISM [None]
